FAERS Safety Report 20015470 (Version 1)
Quarter: 2021Q4

REPORT INFORMATION
  Report Type: Spontaneous
  Country: US (occurrence: None)
  Receive Date: 20211031
  Receipt Date: 20211031
  Transmission Date: 20220304
  Serious: Yes (Hospitalization, Other)
  Sender: FDA-Public Use
  Company Number: None

PATIENT
  Age: 56 Year
  Sex: Female
  Weight: 74.25 kg

DRUGS (3)
  1. OMEPRAZOLE [Suspect]
     Active Substance: OMEPRAZOLE
     Indication: Dyspepsia
     Dosage: FREQUENCY : AT BEDTIME;?
     Route: 048
     Dates: start: 20210928, end: 20211028
  2. LYRICA [Concomitant]
     Active Substance: PREGABALIN
  3. SKELAXIN [Concomitant]
     Active Substance: METAXALONE

REACTIONS (12)
  - Product substitution issue [None]
  - Heart rate increased [None]
  - Haematemesis [None]
  - Diarrhoea haemorrhagic [None]
  - Gastric dilatation [None]
  - Abdominal rigidity [None]
  - Anxiety [None]
  - Fatigue [None]
  - Nausea [None]
  - Dry eye [None]
  - Eye irritation [None]
  - Eye pain [None]

NARRATIVE: CASE EVENT DATE: 20210928
